FAERS Safety Report 24750430 (Version 1)
Quarter: 2024Q4

REPORT INFORMATION
  Report Type: Spontaneous
  Country: US (occurrence: US)
  Receive Date: 20241218
  Receipt Date: 20241218
  Transmission Date: 20250114
  Serious: No
  Sender: STALLERGENES
  Company Number: US-STALCOR-2024-AER-02735

PATIENT
  Sex: Female

DRUGS (5)
  1. ALTERNARIA ALTERNATA [Suspect]
     Active Substance: ALTERNARIA ALTERNATA
     Indication: Rhinitis allergic
     Route: 058
  2. STEMPHYLIUM SOLANI [Suspect]
     Active Substance: STEMPHYLIUM SOLANI
     Indication: Rhinitis allergic
     Route: 058
  3. BIPOLARIS SOROKINIANA [Suspect]
     Active Substance: COCHLIOBOLUS SATIVUS
     Indication: Rhinitis allergic
     Route: 058
  4. STERILE DILUENT FOR ALLERGENIC EXTRACT (ALBUMIN (HUMAN)\PHENOL) [Suspect]
     Active Substance: ALBUMIN HUMAN\PHENOL
     Indication: Rhinitis allergic
     Route: 058
  5. ASPERGILLUS FUMIGATUS [Suspect]
     Active Substance: ASPERGILLUS FUMIGATUS
     Route: 058

REACTIONS (1)
  - Injection site discolouration [Unknown]
